FAERS Safety Report 8481605-8 (Version None)
Quarter: 2012Q3

REPORT INFORMATION
  Report Type: 
  Country: None (occurrence: None)
  Receive Date: 20120702
  Receipt Date: 20120627
  Transmission Date: 20120928
  Serious: Yes (Death, Hospitalization, Other)
  Sender: FDA-Public Use
  Company Number: FR-PFIZER INC-2012144301

PATIENT
  Age: 14 Year
  Sex: Male
  Weight: 38 kg

DRUGS (1)
  1. SOMATROPIN [Suspect]
     Dosage: 14 MG, WEEKLY
     Dates: start: 20010510, end: 20110210

REACTIONS (2)
  - LUNG DISORDER [None]
  - PSEUDOMONAS INFECTION [None]
